FAERS Safety Report 9292858 (Version 1)
Quarter: 2013Q2

REPORT INFORMATION
  Report Type: Spontaneous
  Country: US (occurrence: None)
  Receive Date: 20130513
  Receipt Date: 20130513
  Transmission Date: 20140414
  Serious: Yes (Disabling, Other)
  Sender: FDA-Public Use
  Company Number: 1304-472

PATIENT
  Age: 80 Year
  Sex: Male

DRUGS (6)
  1. EYLEA [Suspect]
     Indication: AGE-RELATED MACULAR DEGENERATION
     Dosage: 2MG, Q7-8WKS, INTRAVITREAL
     Dates: start: 20111221, end: 20130407
  2. ZYRTEC (CETIRIZINE HYDROCHLORIDE) [Concomitant]
  3. ASA (ACETYLSALICYLIC ACID) [Concomitant]
  4. LISINOPRIL (LISINOPRIL) [Concomitant]
  5. I-CAPS (VI-CAPS) [Concomitant]
  6. OTC ALLERGY MEDICATION (ALLERGY MEDICATION) [Concomitant]

REACTIONS (3)
  - Endophthalmitis [None]
  - Eye inflammation [None]
  - Visual acuity reduced [None]
